FAERS Safety Report 13964372 (Version 3)
Quarter: 2017Q4

REPORT INFORMATION
  Report Type: Spontaneous
  Country: JP (occurrence: JP)
  Receive Date: 20170913
  Receipt Date: 20171226
  Transmission Date: 20180320
  Serious: Yes (Hospitalization)
  Sender: FDA-Public Use
  Company Number: JP-EISAI MEDICAL RESEARCH-EC-2017-029630

PATIENT
  Age: 93 Year
  Sex: Female

DRUGS (5)
  1. LENVIMA [Suspect]
     Active Substance: LENVATINIB
     Route: 048
     Dates: start: 201703, end: 201704
  2. LENVIMA [Suspect]
     Active Substance: LENVATINIB
     Route: 048
     Dates: start: 201711, end: 2017
  3. LENVIMA [Suspect]
     Active Substance: LENVATINIB
     Route: 048
     Dates: start: 201706, end: 2017
  4. LENVIMA [Suspect]
     Active Substance: LENVATINIB
     Indication: THYROID CANCER
     Route: 048
     Dates: start: 20170214, end: 201702
  5. LENVIMA [Suspect]
     Active Substance: LENVATINIB
     Dosage: UNKNOWN
     Route: 048
     Dates: start: 2017, end: 201706

REACTIONS (6)
  - Dehydration [Recovered/Resolved]
  - Fatigue [Recovered/Resolved]
  - Proteinuria [Unknown]
  - Decreased appetite [Recovered/Resolved]
  - Femoral neck fracture [Recovered/Resolved]
  - Haematemesis [Recovering/Resolving]

NARRATIVE: CASE EVENT DATE: 2017
